FAERS Safety Report 7409091-7 (Version None)
Quarter: 2011Q2

REPORT INFORMATION
  Report Type: 
  Country: None (occurrence: None)
  Receive Date: 20110412
  Receipt Date: 20110405
  Transmission Date: 20111010
  Serious: Yes (Hospitalization, Other)
  Sender: FDA-Public Use
  Company Number: JP-ROCHE-690118

PATIENT
  Sex: Female
  Weight: 38 kg

DRUGS (9)
  1. CARBOPLATIN [Concomitant]
     Dosage: DOSAGE IS UNCERTAIN
     Route: 041
     Dates: start: 20091216
  2. AMOBAN [Concomitant]
     Route: 048
     Dates: start: 20091216
  3. PACLITAXEL [Concomitant]
     Route: 041
     Dates: start: 20091216
  4. RAMELTEON [Concomitant]
     Route: 048
     Dates: start: 20091216
  5. BENET [Concomitant]
     Dosage: DRUG: BENET(SODIUM RISEDRONATE HYDRATE)
     Route: 048
     Dates: start: 20091216
  6. AVASTIN [Suspect]
     Indication: ADENOSQUAMOUS CELL LUNG CANCER RECURRENT
     Dosage: NOTE: DOSAGE IS UNCERTAIN.
     Route: 041
     Dates: start: 20091216, end: 20100223
  7. DEPAS [Concomitant]
     Route: 048
     Dates: start: 20091216
  8. SELBEX [Concomitant]
     Route: 048
     Dates: start: 20091216
  9. ALIMTA [Concomitant]
     Dosage: DRUG: ALIMTA(PEMETREXED SODIUM HYDRATE);  DOSAGE IS UNCERTAIN
     Route: 041
     Dates: end: 20100224

REACTIONS (7)
  - PLATELET COUNT DECREASED [None]
  - SUPRAVENTRICULAR TACHYCARDIA [None]
  - MALAISE [None]
  - NAUSEA [None]
  - NEUTROPHIL COUNT DECREASED [None]
  - DECREASED APPETITE [None]
  - ARRHYTHMIA SUPRAVENTRICULAR [None]
